FAERS Safety Report 12678022 (Version 2)
Quarter: 2016Q3

REPORT INFORMATION
  Report Type: Report from Study
  Country: JP (occurrence: JP)
  Receive Date: 20160823
  Receipt Date: 20160920
  Transmission Date: 20161109
  Serious: Yes (Death, Hospitalization)
  Sender: FDA-Public Use
  Company Number: JP-INCYTE CORPORATION-2016IN004725

PATIENT
  Age: 64 Year
  Sex: Female
  Weight: 43 kg

DRUGS (6)
  1. JAKAFI [Suspect]
     Active Substance: RUXOLITINIB
     Indication: MYELOFIBROSIS
     Dosage: 10 MG, BID
     Route: 048
     Dates: start: 20141211, end: 20160511
  2. ZYLORIC [Concomitant]
     Active Substance: ALLOPURINOL
     Indication: PRODUCT USED FOR UNKNOWN INDICATION
     Dosage: 100 MG, UNK
     Route: 048
  3. HYDROXYCARBAMID [Concomitant]
     Active Substance: HYDROXYUREA
     Indication: MYELOFIBROSIS
     Dosage: 1000 MG, UNK
     Route: 048
     Dates: start: 20160523, end: 20160604
  4. JAKAFI [Suspect]
     Active Substance: RUXOLITINIB
     Dosage: 15 MG, BID
     Route: 048
     Dates: start: 20160512, end: 20160603
  5. ARABITIN [Concomitant]
     Indication: MYELOFIBROSIS
     Dosage: 145 MG, UNK
     Route: 065
     Dates: start: 20160603, end: 20160604
  6. IDARUBICIN [Concomitant]
     Active Substance: IDARUBICIN
     Indication: MYELOFIBROSIS
     Dosage: 17 MG, UNK
     Route: 065
     Dates: start: 20160603, end: 20160604

REACTIONS (3)
  - Pyrexia [Fatal]
  - Platelet count decreased [Unknown]
  - Acute leukaemia [Fatal]

NARRATIVE: CASE EVENT DATE: 20160512
